FAERS Safety Report 16201659 (Version 1)
Quarter: 2019Q2

REPORT INFORMATION
  Report Type: Report from Study
  Country: AR (occurrence: AR)
  Receive Date: 20190416
  Receipt Date: 20190416
  Transmission Date: 20190711
  Serious: Yes (Hospitalization)
  Sender: FDA-Public Use
  Company Number: AR-ROCHE-2299945

PATIENT
  Sex: Male

DRUGS (2)
  1. XELODA [Suspect]
     Active Substance: CAPECITABINE
     Indication: PRODUCT USED FOR UNKNOWN INDICATION
     Route: 048
  2. PLATINUM [Concomitant]
     Active Substance: PLATINUM

REACTIONS (5)
  - Urethral disorder [Unknown]
  - Renal disorder [Unknown]
  - Vomiting [Unknown]
  - Diarrhoea [Unknown]
  - Toxicity to various agents [Unknown]
